FAERS Safety Report 25976771 (Version 2)
Quarter: 2025Q4

REPORT INFORMATION
  Report Type: Report from Study
  Country: JP (occurrence: JP)
  Receive Date: 20251029
  Receipt Date: 20251224
  Transmission Date: 20260119
  Serious: Yes (Hospitalization)
  Sender: TAKEDA
  Company Number: JP-TAKEDA-2025TJP007889

PATIENT
  Age: 6 Decade
  Sex: Male

DRUGS (10)
  1. APADAMTASE ALFA [Suspect]
     Active Substance: APADAMTASE ALFA
     Indication: Congenital thrombotic thrombocytopenic purpura
     Dosage: 40 INTERNATIONAL UNIT/KILOGRAM
  2. APADAMTASE ALFA [Suspect]
     Active Substance: APADAMTASE ALFA
     Dosage: 40 INTERNATIONAL UNIT/KILOGRAM
     Dates: start: 20250717, end: 20250717
  3. APADAMTASE ALFA [Suspect]
     Active Substance: APADAMTASE ALFA
     Dosage: 20 INTERNATIONAL UNIT/KILOGRAM
     Dates: start: 20250718, end: 20250718
  4. APADAMTASE ALFA [Suspect]
     Active Substance: APADAMTASE ALFA
     Dosage: 15 INTERNATIONAL UNIT/KILOGRAM
     Dates: start: 20250719, end: 20250719
  5. APADAMTASE ALFA [Suspect]
     Active Substance: APADAMTASE ALFA
     Dosage: 3000 INTERNATIONAL UNIT
  6. BISOPROLOL FUMARATE [Concomitant]
     Active Substance: BISOPROLOL FUMARATE
     Dosage: UNK
  7. ASPIRIN [Concomitant]
     Active Substance: ASPIRIN
     Indication: Prophylaxis
     Dosage: UNK
  8. NEXIUM [Concomitant]
     Active Substance: ESOMEPRAZOLE MAGNESIUM
     Indication: Prophylaxis
     Dosage: UNK
  9. NORVASC [Concomitant]
     Active Substance: AMLODIPINE BESYLATE
     Dosage: UNK
  10. NIFEDIPINE [Concomitant]
     Active Substance: NIFEDIPINE
     Dosage: UNK

REACTIONS (1)
  - Coronavirus infection [Recovered/Resolved]

NARRATIVE: CASE EVENT DATE: 20250717
